FAERS Safety Report 5921437-5 (Version None)
Quarter: 2008Q4

REPORT INFORMATION
  Report Type: 
  Country: None (occurrence: None)
  Receive Date: 20081014
  Receipt Date: 20080930
  Transmission Date: 20090506
  Serious: Yes (Death, Hospitalization)
  Sender: FDA-Public Use
  Company Number: 2008BI021216

PATIENT
  Age: 55 Year
  Sex: Female

DRUGS (3)
  1. AVONEX [Suspect]
     Indication: MULTIPLE SCLEROSIS
     Dosage: 30 UG;QW;IM
     Route: 030
     Dates: start: 20040701
  2. . [Concomitant]
  3. LEVAQUIN (PREV.) [Concomitant]

REACTIONS (5)
  - BLOOD DISORDER [None]
  - CARDIAC ARREST [None]
  - DEHYDRATION [None]
  - INFECTION [None]
  - NAUSEA [None]
